FAERS Safety Report 18564715 (Version 1)
Quarter: 2020Q4

REPORT INFORMATION
  Report Type: Spontaneous
  Country: US (occurrence: US)
  Receive Date: 20201201
  Receipt Date: 20201201
  Transmission Date: 20210114
  Serious: Yes (Hospitalization, Other)
  Sender: FDA-Public Use
  Company Number: US-009507513-2011USA015596

PATIENT
  Age: 82 Year
  Sex: Female

DRUGS (3)
  1. PRINIVIL [Suspect]
     Active Substance: LISINOPRIL
     Route: 048
  2. EXFORGE [Concomitant]
     Active Substance: AMLODIPINE BESYLATE\VALSARTAN
  3. DIOVAN [Concomitant]
     Active Substance: VALSARTAN

REACTIONS (4)
  - Drug hypersensitivity [Unknown]
  - Throat tightness [Unknown]
  - Swollen tongue [Unknown]
  - Food allergy [Unknown]
